FAERS Safety Report 11329972 (Version 1)
Quarter: 2015Q3

REPORT INFORMATION
  Report Type: Spontaneous
  Country: US (occurrence: None)
  Receive Date: 20150730
  Receipt Date: 20150730
  Transmission Date: 20151125
  Serious: Yes (Disabling)
  Sender: FDA-Public Use
  Company Number: None

PATIENT
  Age: 52 Year
  Sex: Female

DRUGS (10)
  1. B VITAMINS [Concomitant]
     Active Substance: CYANOCOBALAMIN\DEXPANTHENOL\NIACINAMIDE\PYRIDOXINE HYDROCHLORIDE\RIBOFLAVIN 5^-PHOSPHATE SODIUM\THIAMINE HYDROCHLORIDE\VITAMIN B COMPLEX
  2. WOMENS VITAMIN [Concomitant]
  3. CIPROFLOXACIN. [Suspect]
     Active Substance: CIPROFLOXACIN
     Indication: GASTROENTERITIS VIRAL
     Route: 048
     Dates: start: 20121012, end: 20121021
  4. THYROID [Concomitant]
     Active Substance: LEVOTHYROXINE\LIOTHYRONINE
  5. ESTROGEN [Concomitant]
     Active Substance: ESTRONE\SUS SCROFA OVARY
  6. HIGH BLOOD PRESSURE [Concomitant]
  7. MAGNESIUM AND CALCIUM [Concomitant]
  8. VITAMIN D [Concomitant]
     Active Substance: CHOLECALCIFEROL
  9. PAIN MEDICATIONS [Concomitant]
     Active Substance: UNSPECIFIED INGREDIENT
  10. LYRICA [Concomitant]
     Active Substance: PREGABALIN

REACTIONS (9)
  - Vitreous floaters [None]
  - Pain [None]
  - Hypothermia [None]
  - Neuropathy peripheral [None]
  - Balance disorder [None]
  - Pain in extremity [None]
  - Hypoaesthesia [None]
  - Hypothyroidism [None]
  - Barrett^s oesophagus [None]

NARRATIVE: CASE EVENT DATE: 20121012
